FAERS Safety Report 10173984 (Version 2)
Quarter: 2014Q2

REPORT INFORMATION
  Report Type: Spontaneous
  Country: US (occurrence: None)
  Receive Date: 20140416
  Receipt Date: 20140604
  Transmission Date: 20141212
  Serious: Yes (Hospitalization, Other)
  Sender: FDA-Public Use
  Company Number: 163-POMAL-13124928

PATIENT
  Age: 73 Year
  Sex: Female
  Weight: 76.2 kg

DRUGS (13)
  1. POMALYST [Suspect]
     Indication: PLASMA CELL MYELOMA
     Dosage: 21 IN 28 D
     Route: 048
     Dates: start: 20131031, end: 20131208
  2. PANTOPRAZOLE SODIUM (PANTOPRAZOLE SODIUM) [Concomitant]
  3. DEXAMETHASONE (DEXAMETHASONE) [Concomitant]
  4. VITAMIN D3 (COLECALCIFEROL) [Concomitant]
  5. ACYCLOVIR(ACICLOVIR) [Concomitant]
  6. FOLIC ACID (FOLIC ACID) [Concomitant]
  7. VITAMIN B COMPLEX (B-KOMPLEX ^LECIVA^) [Concomitant]
  8. POTASSIUM (POTASSIUM) [Concomitant]
  9. GABAPENTIN (GABAPENTIN) [Concomitant]
  10. ZOMETA (ZOLEDRONIC ACID) [Concomitant]
  11. MAGNESIUM (MAGNESIUM) [Concomitant]
  12. LOVASTATIN (LOVASTATIN) [Concomitant]
  13. ASPIRIN (ACETYLSALICYLIC ACID) [Concomitant]

REACTIONS (5)
  - Pneumonia [None]
  - White blood cell count decreased [None]
  - Dyspnoea [None]
  - Blood cholesterol increased [None]
  - Peripheral swelling [None]
